FAERS Safety Report 11310911 (Version 1)
Quarter: 2015Q3

REPORT INFORMATION
  Report Type: Report from Study
  Country: CA (occurrence: CA)
  Receive Date: 20150726
  Receipt Date: 20150726
  Transmission Date: 20151125
  Serious: Yes (Death, Hospitalization)
  Sender: FDA-Public Use
  Company Number: PHHY2015CA078594

PATIENT
  Age: 63 Year
  Sex: Female

DRUGS (1)
  1. SANDOSTATIN LAR DEPOT [Suspect]
     Active Substance: OCTREOTIDE ACETATE
     Indication: MALIGNANT BOWEL OBSTRUCTION
     Dosage: 20 MG, EVERY 4 WEEKS
     Route: 030
     Dates: start: 20150529, end: 20150626

REACTIONS (2)
  - Cachexia [Unknown]
  - Death [Fatal]

NARRATIVE: CASE EVENT DATE: 20150714
